FAERS Safety Report 23185055 (Version 2)
Quarter: 2023Q4

REPORT INFORMATION
  Report Type: Spontaneous
  Country: US (occurrence: US)
  Receive Date: 20231115
  Receipt Date: 20231124
  Transmission Date: 20240110
  Serious: Yes (Death)
  Sender: FDA-Public Use
  Company Number: US-BRISTOL-MYERS SQUIBB COMPANY-2023-162515

PATIENT
  Age: 71 Year
  Sex: Male

DRUGS (26)
  1. POMALYST [Suspect]
     Active Substance: POMALIDOMIDE
     Indication: Plasma cell myeloma
     Route: 048
     Dates: start: 20230923, end: 202311
  2. IBUPROFEN [Concomitant]
     Active Substance: IBUPROFEN
     Indication: Pain
     Dosage: TAKE 1 TABLET BY MOUTH EVERY 6 HOURS FOR 3 DAYS POST OP THEN 1 EVERY 6 HOURS AS NEEDED FOR PAIN
  3. ALBUTEROL SULFATE [Concomitant]
     Active Substance: ALBUTEROL SULFATE
     Indication: Wheezing
     Dosage: (8.5GM) 200 PUFFS)? INHALE 1 PUFFS BY MOUTH EVERY 4 HOURS AS NEEDED
     Route: 048
  4. ALBUTEROL SULFATE [Concomitant]
     Active Substance: ALBUTEROL SULFATE
     Dosage: (8.5GM) 200 PUFFS)? INHALE 2 PUFFS BY MOUTH EVERY 4 HOURS AS NEEDED
     Route: 048
  5. ALPRAZOLAM [Concomitant]
     Active Substance: ALPRAZOLAM
     Indication: Product used for unknown indication
     Dosage: TAKE 1 TABLET BY MOUTH 1 HOUR BEFORE SURGERY
     Route: 048
  6. AZITHROMYCIN [Concomitant]
     Active Substance: AZITHROMYCIN
     Indication: Product used for unknown indication
     Dosage: 6 PACK ( TAKE 2 TABLETS BY MOUTH FOR 1 DAY THEN TAKE 1 TABLET BY MOUTH DAILY FOR 4 DAYS)
     Route: 048
  7. CHLORHEXIDINE [Concomitant]
     Active Substance: CHLORHEXIDINE\CHLORHEXIDINE GLUCONATE
     Indication: Product used for unknown indication
     Dosage: CHLORHEXIDINE 0.12% ORAL RINS  473ML( RINSE 15 ML BY MOUTH TWICE DAILY AND RINSE MOUTH WITH 15 ML TW
     Route: 048
  8. ACYCLOVIR [Concomitant]
     Active Substance: ACYCLOVIR
     Indication: Product used for unknown indication
  9. ASPIRIN [Concomitant]
     Active Substance: ASPIRIN
     Indication: Product used for unknown indication
     Dosage: 81 G EC LOW TABLETS
  10. DARZALEX FASPRO [Concomitant]
     Active Substance: DARATUMUMAB\HYALURONIDASE-FIHJ
     Indication: Product used for unknown indication
  11. DEXAMETHASONE [Concomitant]
     Active Substance: DEXAMETHASONE
     Indication: Product used for unknown indication
  12. TRELEGY ELLIPTA [Concomitant]
     Active Substance: FLUTICASONE FUROATE\UMECLIDINIUM BROMIDE\VILANTEROL TRIFENATATE
     Indication: Product used for unknown indication
     Dosage: 100-62.5MCG INH 30P ?INHALE 1 PUFF BY MOUTH DAILY. RINSE MOUTH WITH WATER AFTER USE, WITHOUT  SWALLO
     Route: 048
  13. TRAMADOL [Concomitant]
     Active Substance: TRAMADOL\TRAMADOL HYDROCHLORIDE
     Indication: Pain
     Dosage: TAKE 1 TABLET BY MOUTH EVERY 6 HOURS AS NEEDED FOR PAIN. MAX DAILY ?AMOUNT: 200 MG. ?TAKE 1 TABLET B
     Route: 048
  14. TIZANIDINE [Concomitant]
     Active Substance: TIZANIDINE
     Indication: Muscle spasms
     Dosage: TAKE ONE TABLET BY MOUTH EVERY NIGHT AS NEEDED
     Route: 048
  15. ROSUVASTATIN [Concomitant]
     Active Substance: ROSUVASTATIN
     Indication: Muscle spasms
     Dosage: TAKE ONE TABLET BY MOUTH EVERY DAY AND EVERY DAY AT BED TIME
     Route: 048
  16. SENNA S [Concomitant]
     Active Substance: DOCUSATE SODIUM\SENNA LEAF
     Indication: Constipation
     Dosage: 8.6-50 MG  ( TWICE DAILY)
     Route: 048
  17. COMIRNATY (TOZINAMERAN) [Concomitant]
     Active Substance: TOZINAMERAN
     Dosage: ADMINISTER 0.3ML I NTHE MUSCLE AS ?DIRECTED TODAY ?(COVID) 23-24 SDV
     Route: 030
  18. CYCLOBENZAPRINE [Concomitant]
     Active Substance: CYCLOBENZAPRINE
     Indication: Muscle spasms
     Dosage: TAKE 1 TABLET BY MOUTH THREE TIMES DAILY AS NEEDED
     Route: 048
  19. CYCLOBENZAPRINE [Concomitant]
     Active Substance: CYCLOBENZAPRINE
     Dosage: TAKE 1 TO 2 TABLETS BY MOUTH THREE TIMES DAILY AS NEEDED FOR MUSCLE SPASMS
     Route: 048
  20. DIAZEPAM [Concomitant]
     Active Substance: DIAZEPAM
     Dosage: TAKE 1 TABLET BY MOUTH AN HOUR PRIOR TO PROCEDURE, REPEAT 30 MINUTES PRIOR IF NEEDED.
     Route: 048
  21. FLUZONE HIGH-DOSE NOS [Concomitant]
     Active Substance: INFLUENZA A VIRUS A/CALIFORNIA/7/2009 X-179A (H1N1) ANTIGEN (FORMALDEHYDE INACTIVATED)\INFLUENZA A V
     Dosage: 65+ PF 2022-231NJ 0.7ML ?ADMINISTER 0.7ML IN THE MUSCLE AS DIRECTED TODAY
     Route: 030
  22. GABAPENTIN [Concomitant]
     Active Substance: GABAPENTIN
     Dosage: TAKE 1 TO 2 CAPSULES BY MOUTH AT BED TIME
     Route: 048
  23. LISINOPRIL [Concomitant]
     Active Substance: LISINOPRIL
     Route: 048
  24. OXYCODONE [Concomitant]
     Active Substance: OXYCODONE
     Indication: Pain
     Dosage: TAKE 1 TO 2 TABLETS 1 BY MOUTH EVERY 4 HOURS FOR UP TO 14 DAYS AS NEEDED FOR PAIN. MAX DAILY ?AMOUNT
     Route: 048
  25. PREGABALIN [Concomitant]
     Active Substance: PREGABALIN
     Dosage: TAKE 1 CAPSULE BY MOUTH TWICE DAILY. ?MAX DAILY AMOUNT: 150 MG
     Route: 048
  26. COVID-19 VACCINE [Concomitant]
     Dosage: PFIZER ( BIVALENT 12+)ADMINISTER 0.3ML IN THE MUSCLE AS DIRECTED TODAY

REACTIONS (1)
  - Death [Fatal]

NARRATIVE: CASE EVENT DATE: 20231101
